FAERS Safety Report 21799729 (Version 8)
Quarter: 2025Q2

REPORT INFORMATION
  Report Type: Report from Study
  Country: CO (occurrence: CO)
  Receive Date: 20221230
  Receipt Date: 20250613
  Transmission Date: 20250717
  Serious: Yes (Other)
  Sender: TAKEDA
  Company Number: CO-TAKEDA-2022TUS103710

PATIENT
  Age: 30 Year
  Sex: Male
  Weight: 63 kg

DRUGS (3)
  1. VEDOLIZUMAB [Suspect]
     Active Substance: VEDOLIZUMAB
     Indication: Colitis ulcerative
     Dates: start: 20220224, end: 20240515
  2. VEDOLIZUMAB [Suspect]
     Active Substance: VEDOLIZUMAB
  3. PREDNISOLONE [Suspect]
     Active Substance: PREDNISOLONE
     Indication: Product used for unknown indication

REACTIONS (14)
  - Rectal haemorrhage [Unknown]
  - Haematochezia [Unknown]
  - Colitis ulcerative [Unknown]
  - Steroid dependence [Unknown]
  - Diarrhoea [Unknown]
  - Dyschezia [Unknown]
  - Weight increased [Unknown]
  - Bone pain [Recovering/Resolving]
  - Drug effect less than expected [Unknown]
  - Discouragement [Recovering/Resolving]
  - Malaise [Recovering/Resolving]
  - Abdominal pain [Unknown]
  - Headache [Unknown]
  - Pyrexia [Recovering/Resolving]

NARRATIVE: CASE EVENT DATE: 20221219
